FAERS Safety Report 11599275 (Version 28)
Quarter: 2020Q2

REPORT INFORMATION
  Report Type: Report from Study
  Country: US (occurrence: US)
  Receive Date: 20151006
  Receipt Date: 20200616
  Transmission Date: 20200713
  Serious: Yes (Hospitalization, Other)
  Sender: FDA-Public Use
  Company Number: US-ACTELION-A-NJ2015-124867

PATIENT
  Age: 42 Year
  Sex: Female
  Weight: 65.31 kg

DRUGS (66)
  1. OPSUMIT [Suspect]
     Active Substance: MACITENTAN
     Dosage: UNK
     Route: 048
     Dates: start: 20200121
  2. ASPIRIN. [Concomitant]
     Active Substance: ASPIRIN
  3. LACTULOSE. [Concomitant]
     Active Substance: LACTULOSE
  4. FERROUS SULFATE. [Concomitant]
     Active Substance: FERROUS SULFATE
     Dosage: UNK
     Dates: start: 20151105
  5. FERROUS SULFATE. [Concomitant]
     Active Substance: FERROUS SULFATE
  6. SENNA LAXATIVE [Concomitant]
     Active Substance: SENNOSIDES
     Dosage: UNK
     Dates: start: 20190716
  7. ALBUTEROL W/IPRATROPIUM [Concomitant]
     Active Substance: ALBUTEROL\IPRATROPIUM
     Dosage: UNK
     Dates: start: 20191227
  8. LASIX [Suspect]
     Active Substance: FUROSEMIDE
     Dosage: 40 MG, BID
     Route: 048
  9. OXYGEN. [Concomitant]
     Active Substance: OXYGEN
     Dosage: 1 L, UNK AT NIGHT
     Dates: start: 20131014
  10. PRILOSEC [Concomitant]
     Active Substance: OMEPRAZOLE MAGNESIUM
     Dosage: 40 MG, UNK
  11. NICOTINE. [Concomitant]
     Active Substance: NICOTINE
     Dosage: UNK
     Dates: start: 20190716
  12. LEVOTHYROXINE. [Concomitant]
     Active Substance: LEVOTHYROXINE
  13. OMEPRAZOLE. [Concomitant]
     Active Substance: OMEPRAZOLE
  14. METRONIDAZOLE. [Concomitant]
     Active Substance: METRONIDAZOLE
     Dosage: UNK
     Dates: start: 20191227
  15. MULTIVITAMIN [Concomitant]
     Active Substance: VITAMINS
     Dosage: UNK
     Dates: start: 20191227
  16. ONDASETRON [Concomitant]
     Active Substance: ONDANSETRON
     Dosage: UNK
     Dates: start: 20191227
  17. LASIX [Suspect]
     Active Substance: FUROSEMIDE
     Dosage: 60 MG, BID
     Route: 048
  18. XIFAXAN [Concomitant]
     Active Substance: RIFAXIMIN
     Dosage: 550 MG, UNK
  19. CHOLECALCIFEROL [Concomitant]
     Active Substance: CHOLECALCIFEROL
     Dosage: 1000 U, QD
     Route: 048
     Dates: start: 20140219
  20. DEXTROSE. [Concomitant]
     Active Substance: DEXTROSE
     Dosage: UNK
     Dates: start: 20150906
  21. SPIRONOLACTONE. [Concomitant]
     Active Substance: SPIRONOLACTONE
     Dosage: UNK
     Dates: start: 20100222
  22. METHADONE [Concomitant]
     Active Substance: METHADONE HYDROCHLORIDE
     Dosage: UNK
     Dates: start: 20080225
  23. CEFEPIME [Concomitant]
     Active Substance: CEFEPIME HYDROCHLORIDE
     Dosage: UNK
     Dates: start: 20191227
  24. FAMOTIDINE. [Concomitant]
     Active Substance: FAMOTIDINE
     Dosage: UNK
     Dates: start: 20191227
  25. RANITIDINE. [Concomitant]
     Active Substance: RANITIDINE
     Dosage: UNK
     Dates: start: 20191227
  26. OPSUMIT [Suspect]
     Active Substance: MACITENTAN
     Indication: PULMONARY ARTERIAL HYPERTENSION
     Dosage: 10 MG, QD
     Route: 048
     Dates: start: 20140801, end: 20200104
  27. XARELTO [Suspect]
     Active Substance: RIVAROXABAN
     Indication: PRODUCT USED FOR UNKNOWN INDICATION
     Dosage: 20 MG, UNK
     Route: 048
  28. LASIX [Suspect]
     Active Substance: FUROSEMIDE
     Indication: OEDEMA PERIPHERAL
     Dosage: 80 MG, BID
     Route: 048
     Dates: start: 20150131
  29. ACTIGALL [Concomitant]
     Active Substance: URSODIOL
     Dosage: 300 MG, BID
     Route: 048
  30. FENTANYL. [Concomitant]
     Active Substance: FENTANYL
     Dosage: UNK
     Dates: start: 20150822
  31. CALCIUM CARBONATE. [Concomitant]
     Active Substance: CALCIUM CARBONATE
     Dosage: UNK
     Dates: start: 20190716
  32. LEVOFLOXACIN. [Concomitant]
     Active Substance: LEVOFLOXACIN
  33. SERTRALINE [Concomitant]
     Active Substance: SERTRALINE HYDROCHLORIDE
     Dosage: UNK
     Dates: start: 20190716
  34. ACETAMINOPHEN. [Concomitant]
     Active Substance: ACETAMINOPHEN
     Dosage: UNK
     Dates: start: 20191227
  35. MAGNESIUM SULFATE. [Concomitant]
     Active Substance: MAGNESIUM SULFATE
     Dosage: UNK
     Dates: start: 20191227
  36. SODIUM CHLORIDE. [Concomitant]
     Active Substance: SODIUM CHLORIDE
     Dosage: UNK
     Dates: start: 20191227
  37. METOLAZONE. [Suspect]
     Active Substance: METOLAZONE
     Indication: OEDEMA PERIPHERAL
     Dosage: 2.5 MG, QD
     Route: 048
  38. REVATIO [Concomitant]
     Active Substance: SILDENAFIL CITRATE
     Dosage: 20 MG, TID
     Route: 048
  39. DABIGATRAN [Concomitant]
     Active Substance: DABIGATRAN
     Indication: PRODUCT USED FOR UNKNOWN INDICATION
     Dosage: 150 MG, BID
     Route: 048
     Dates: start: 20111129
  40. FOLIC ACID. [Concomitant]
     Active Substance: FOLIC ACID
     Dosage: 1 MG, QD
     Route: 048
     Dates: start: 20150307
  41. POTASSIUM CHLORIDE. [Concomitant]
     Active Substance: POTASSIUM CHLORIDE
     Dosage: UNK
     Dates: start: 20160220
  42. CHLORHEXIDINE [Concomitant]
     Active Substance: CHLORHEXIDINE
     Dosage: UNK
     Dates: start: 20191227
  43. PERFLUTREN [Concomitant]
     Active Substance: PERFLUTREN
     Dosage: UNK
     Dates: start: 20191227
  44. PROPOFOL. [Concomitant]
     Active Substance: PROPOFOL
     Dosage: UNK
     Dates: start: 20191227
  45. OXYCODONE [Concomitant]
     Active Substance: OXYCODONE
     Dosage: 30 MG, UNK
  46. ZANTAC [Concomitant]
     Active Substance: RANITIDINE HYDROCHLORIDE
     Dosage: 300 MG, UNK
  47. RIFAXIMIN. [Concomitant]
     Active Substance: RIFAXIMIN
  48. CARVEDILOL. [Concomitant]
     Active Substance: CARVEDILOL
     Dosage: UNK
     Dates: start: 20191227
  49. IODIXANOL. [Concomitant]
     Active Substance: IODIXANOL
     Dosage: UNK
     Dates: start: 20191227
  50. NOREPINEPHRINE. [Concomitant]
     Active Substance: NOREPINEPHRINE
     Dosage: UNK
     Dates: start: 20191227
  51. ALBUMIN [Concomitant]
     Active Substance: ALBUMIN HUMAN
     Dosage: UNK
     Dates: start: 20150906
  52. IOHEXOL [Concomitant]
     Active Substance: IOHEXOL
     Dosage: UNK
     Dates: start: 20160417
  53. AZITHROMYCIN ANHYDROUS. [Concomitant]
     Active Substance: AZITHROMYCIN ANHYDROUS
     Dosage: UNK
     Dates: start: 20191227
  54. CALAMINE LOTION PHENOLATED [Concomitant]
     Dosage: UNK
     Dates: start: 20191227
  55. DEXTROSE 5% [Concomitant]
     Active Substance: DEXTROSE
     Dosage: UNK
     Dates: start: 20191227
  56. HYDROMORPHONE [Concomitant]
     Active Substance: HYDROMORPHONE
     Dosage: UNK
     Dates: start: 20191227
  57. OXYMETAZOLINE [Concomitant]
     Active Substance: OXYMETAZOLINE
     Dosage: UNK
     Dates: start: 20191227
  58. PHOSPHATE SANDOZ [Concomitant]
     Active Substance: SODIUM PHOSPHATE, MONOBASIC, ANHYDROUS
     Dosage: UNK
     Dates: start: 20191227
  59. THIAMINE. [Concomitant]
     Active Substance: THIAMINE
     Dosage: UNK
     Dates: start: 20191227
  60. ENOXAPARIN [Concomitant]
     Active Substance: ENOXAPARIN
     Dosage: UNK
     Dates: start: 20160417
  61. CEPHULAC [Concomitant]
     Active Substance: LACTULOSE
     Dosage: UNK, 10 GM/ML
  62. ALDACTONE [Concomitant]
     Active Substance: SPIRONOLACTONE
     Dosage: 50 MG, UNK
  63. ALBUTEROL. [Concomitant]
     Active Substance: ALBUTEROL
     Dosage: UNK
     Dates: start: 20190716
  64. IPRATROPIUM [Concomitant]
     Active Substance: IPRATROPIUM
  65. INSULIN LISPRO [Concomitant]
     Active Substance: INSULIN LISPRO
     Dosage: UNK
     Dates: start: 20191227
  66. PROCHLORPERAZINE. [Concomitant]
     Active Substance: PROCHLORPERAZINE
     Dosage: UNK
     Dates: start: 20191227

REACTIONS (78)
  - Hypervolaemia [Recovered/Resolved]
  - Gastrointestinal haemorrhage [Recovered/Resolved]
  - Bronchial wall thickening [Recovered/Resolved]
  - Pulmonary oedema [Unknown]
  - Dizziness [Recovered/Resolved]
  - Chills [Recovered/Resolved]
  - Oedema [Recovered/Resolved]
  - Dyspnoea [Recovered/Resolved]
  - Condition aggravated [Unknown]
  - Crying [Unknown]
  - Headache [Recovered/Resolved]
  - Malnutrition [Recovered/Resolved]
  - Rhonchi [Unknown]
  - Fatigue [Recovered/Resolved]
  - Atelectasis [Unknown]
  - Renal failure [Unknown]
  - Gastrointestinal erosion [Unknown]
  - Haemoglobin decreased [Recovered/Resolved]
  - Varices oesophageal [Unknown]
  - Cellulitis [Unknown]
  - Post thrombotic syndrome [Unknown]
  - Oedema peripheral [Unknown]
  - Back pain [Recovered/Resolved]
  - Hypothyroidism [Unknown]
  - Somnolence [Recovered/Resolved]
  - Nausea [Recovered/Resolved]
  - Confusional state [Unknown]
  - Encephalopathy [Recovered/Resolved]
  - Compression fracture [Unknown]
  - Oxygen consumption increased [Unknown]
  - Gastric disorder [Unknown]
  - Rhinitis [Unknown]
  - Mental status changes [Recovered/Resolved]
  - Chest pain [Recovered/Resolved]
  - Hypoxia [Recovered/Resolved]
  - Right ventricular failure [Recovered/Resolved]
  - Pneumonia escherichia [Unknown]
  - Respiratory failure [Recovered/Resolved]
  - Anaemia [Recovered/Resolved]
  - Swelling [Unknown]
  - Occult blood positive [Recovered/Resolved]
  - Ammonia increased [Recovered/Resolved]
  - Haptoglobin decreased [Unknown]
  - Deep vein thrombosis [Recovered/Resolved]
  - Erythema [Recovered/Resolved]
  - Hospitalisation [Unknown]
  - Abdominal pain [Recovered/Resolved]
  - Toxic encephalopathy [Recovered/Resolved]
  - Dysphagia [Recovered/Resolved]
  - Fluid overload [Recovered/Resolved]
  - Septic shock [Recovered/Resolved]
  - Internal haemorrhage [Unknown]
  - Melaena [Recovered/Resolved]
  - Gastrointestinal mucosal disorder [Unknown]
  - Gastric ulcer [Unknown]
  - Gastrooesophageal reflux disease [Unknown]
  - Respiratory distress [Recovered/Resolved]
  - Haemorrhage [Unknown]
  - Dyspnoea exertional [Recovered/Resolved]
  - Pneumonia [Unknown]
  - Transfusion [Unknown]
  - Oxygen therapy [Unknown]
  - Haemolysis [Unknown]
  - Peripheral venous disease [Recovered/Resolved]
  - Skin ulcer [Unknown]
  - Dermatitis [Unknown]
  - Haematocrit decreased [Unknown]
  - Hepatic encephalopathy [Unknown]
  - Upper gastrointestinal haemorrhage [Recovered/Resolved]
  - Surgery [Unknown]
  - Jaundice acholuric [Recovered/Resolved]
  - Gastric polyps [Unknown]
  - Portal hypertensive gastropathy [Unknown]
  - Blood bilirubin increased [Unknown]
  - Faeces discoloured [Recovered/Resolved]
  - Blood lactate dehydrogenase increased [Unknown]
  - Pain in extremity [Recovered/Resolved]
  - Wound infection pseudomonas [Unknown]

NARRATIVE: CASE EVENT DATE: 201412
